FAERS Safety Report 9534251 (Version 1)
Quarter: 2013Q3

REPORT INFORMATION
  Report Type: Spontaneous
  Country: US (occurrence: US)
  Receive Date: 20130918
  Receipt Date: 20130918
  Transmission Date: 20140515
  Serious: Yes (Hospitalization, Other)
  Sender: FDA-Public Use
  Company Number: US-GLAXOSMITHKLINE-A1041751A

PATIENT
  Age: 76 Year
  Sex: Female

DRUGS (7)
  1. ADVAIR [Suspect]
     Indication: PRODUCT USED FOR UNKNOWN INDICATION
     Dosage: 1PUFF PER DAY
     Route: 055
     Dates: start: 2005
  2. SPIRIVA [Concomitant]
  3. PREDNISONE [Concomitant]
  4. THEOPHYLLINE [Concomitant]
  5. LASIX [Concomitant]
  6. COMBIVENT NEBULIZER [Concomitant]
  7. BABY ASPIRIN [Concomitant]

REACTIONS (1)
  - Pneumonia [Recovering/Resolving]
